FAERS Safety Report 8213901-3 (Version None)
Quarter: 2012Q1

REPORT INFORMATION
  Report Type: 
  Country: None (occurrence: None)
  Receive Date: 20120316
  Receipt Date: 20120307
  Transmission Date: 20120608
  Serious: No
  Sender: FDA-Public Use
  Company Number: US-BIOGENIDEC-2012BI005506

PATIENT
  Sex: Male

DRUGS (1)
  1. AVONEX [Suspect]
     Indication: MULTIPLE SCLEROSIS
     Route: 030
     Dates: start: 20110803

REACTIONS (5)
  - SPINAL CORD DISORDER [None]
  - PROGRESSIVE RELAPSING MULTIPLE SCLEROSIS [None]
  - GAIT DISTURBANCE [None]
  - DYSKINESIA [None]
  - MUSCLE SPASMS [None]
